FAERS Safety Report 6137709-8 (Version None)
Quarter: 2009Q1

REPORT INFORMATION
  Report Type: 
  Country: None (occurrence: None)
  Receive Date: 20090331
  Receipt Date: 20090325
  Transmission Date: 20090719
  Serious: Yes (Hospitalization, Disabling, Other)
  Sender: FDA-Public Use
  Company Number: DK-ASTRAZENECA-2008SE00777

PATIENT
  Age: 22826 Day
  Sex: Female
  Weight: 66 kg

DRUGS (7)
  1. ARIMIDEX [Suspect]
     Indication: BREAST CANCER
     Route: 048
     Dates: start: 20030605, end: 20050428
  2. PINEX [Concomitant]
     Indication: PAIN
     Dates: start: 20030101
  3. CODEINE SUL TAB [Concomitant]
     Indication: PAIN
  4. CALCIUM WITH D-VITAMIN [Concomitant]
     Indication: OSTEOPOROSIS PROPHYLAXIS
     Dates: start: 20030101
  5. ESTROGENIC SUBSTANCE [Concomitant]
     Route: 062
  6. DICLON [Concomitant]
     Indication: ANALGESIA
     Dates: start: 20030601
  7. TAMOXIFEN CITRATE [Concomitant]
     Indication: BREAST CANCER
     Route: 048
     Dates: start: 20030101, end: 20030605

REACTIONS (2)
  - OSTEOARTHRITIS [None]
  - OSTEONECROSIS [None]
